FAERS Safety Report 22092507 (Version 1)
Quarter: 2023Q1

REPORT INFORMATION
  Report Type: Spontaneous
  Country: US (occurrence: US)
  Receive Date: 20230314
  Receipt Date: 20230314
  Transmission Date: 20230418
  Serious: Yes (Life-Threatening, Hospitalization, Other)
  Sender: FDA-Public Use
  Company Number: US-AMERICAN REGENT INC-2023000523

PATIENT
  Sex: Female
  Weight: 80 kg

DRUGS (2)
  1. FERRIC CARBOXYMALTOSE [Suspect]
     Active Substance: FERRIC CARBOXYMALTOSE
     Indication: Iron deficiency anaemia
     Dosage: UNK, SINGLE
     Dates: start: 20210930, end: 20210930
  2. FERROUS SULFATE [Concomitant]
     Active Substance: FERROUS SULFATE
     Indication: Anaemia
     Dosage: 325 MILLIGRAM, TID W/MEALS
     Route: 048

REACTIONS (17)
  - Malaise [Unknown]
  - Asthenia [Unknown]
  - Blood parathyroid hormone increased [Recovered/Resolved]
  - Condition aggravated [Unknown]
  - Feeling abnormal [Unknown]
  - Disturbance in attention [Unknown]
  - Hypoaesthesia [Unknown]
  - Arrhythmia [Unknown]
  - Anxiety [Unknown]
  - Depression [Unknown]
  - Hypophosphataemia [Recovered/Resolved]
  - Headache [Unknown]
  - Dizziness [Unknown]
  - Dyspnoea [Unknown]
  - Chest pain [Unknown]
  - Paraesthesia [Unknown]
  - Palpitations [Unknown]

NARRATIVE: CASE EVENT DATE: 20210101
